FAERS Safety Report 6371351-9 (Version None)
Quarter: 2009Q3

REPORT INFORMATION
  Report Type: 
  Country: None (occurrence: None)
  Receive Date: 20090923
  Receipt Date: 20090904
  Transmission Date: 20100115
  Serious: Yes (Other)
  Sender: FDA-Public Use
  Company Number: CL-PFIZER INC-2009259748

PATIENT
  Age: 36 Year

DRUGS (1)
  1. ECALTA [Suspect]
     Indication: SYSTEMIC CANDIDA
     Dosage: UNK
     Dates: start: 20090818, end: 20090903

REACTIONS (6)
  - DRUG INEFFECTIVE [None]
  - FUNGAL INFECTION [None]
  - HAEMORRHAGE [None]
  - PROTEIN TOTAL ABNORMAL [None]
  - PROTHROMBIN TIME PROLONGED [None]
  - THROMBOCYTOPENIA [None]
